FAERS Safety Report 4310835-1 (Version None)
Quarter: 2004Q1

REPORT INFORMATION
  Report Type: 
  Country: None (occurrence: None)
  Receive Date: 20040302
  Receipt Date: 20040217
  Transmission Date: 20041129
  Serious: Yes (Other)
  Sender: FDA-Public Use
  Company Number: US-JNJFOC-20040101786

PATIENT
  Age: 76 Year
  Sex: Female
  Weight: 46.2669 kg

DRUGS (8)
  1. REMICADE [Suspect]
     Indication: RHEUMATOID ARTHRITIS
     Dosage: 4 MG/KG, 1 IN 1 TOTAL, INTRAVENOUS
     Route: 042
     Dates: start: 20031007
  2. REMICADE [Suspect]
  3. PREDNISONE [Concomitant]
  4. METHOTREXATE SODIUM [Concomitant]
  5. CELEBREX [Concomitant]
  6. PLAQUENIL [Concomitant]
  7. TYLENOL [Concomitant]
  8. ALLEGRA [Concomitant]

REACTIONS (6)
  - ARTHRALGIA [None]
  - DIABETES MELLITUS [None]
  - HYPOGLYCAEMIA [None]
  - JOINT STIFFNESS [None]
  - TENDERNESS [None]
  - WEIGHT INCREASED [None]
